FAERS Safety Report 19402254 (Version 1)
Quarter: 2021Q2

REPORT INFORMATION
  Report Type: Spontaneous
  Country: US (occurrence: US)
  Receive Date: 20210610
  Receipt Date: 20210610
  Transmission Date: 20210717
  Serious: No
  Sender: FDA-Public Use
  Company Number: US-COLLEGIUM PHARMACEUTICAL, INC.-2021CGM00143

PATIENT
  Age: 65 Year
  Sex: Female
  Weight: 75.28 kg

DRUGS (3)
  1. XTAMPZA ER [Suspect]
     Active Substance: OXYCODONE
     Indication: PAIN
  2. VITAMIN B12 [Concomitant]
     Active Substance: CYANOCOBALAMIN
  3. XTAMPZA ER [Suspect]
     Active Substance: OXYCODONE
     Indication: PHANTOM LIMB SYNDROME
     Dosage: 13.5 MG, 3X/DAY
     Route: 048
     Dates: start: 20210122, end: 20210216

REACTIONS (4)
  - Weight increased [Recovering/Resolving]
  - Product substitution issue [Recovered/Resolved]
  - Therapeutic product effect variable [Recovered/Resolved]
  - Off label use [Recovered/Resolved]

NARRATIVE: CASE EVENT DATE: 2021
